FAERS Safety Report 18130934 (Version 9)
Quarter: 2023Q4

REPORT INFORMATION
  Report Type: Spontaneous
  Country: US (occurrence: US)
  Receive Date: 20200810
  Receipt Date: 20231227
  Transmission Date: 20240110
  Serious: Yes (Death)
  Sender: FDA-Public Use
  Company Number: US-PFIZER INC-2020296360

PATIENT
  Age: 89 Year
  Sex: Female
  Weight: 81.65 kg

DRUGS (1)
  1. GENOTROPIN [Suspect]
     Active Substance: SOMATROPIN
     Indication: Hypopituitarism
     Dosage: 0.1 MG, 5 DAYS A WEEK
     Route: 058

REACTIONS (9)
  - Death [Fatal]
  - Drug dose omission by device [Unknown]
  - Device use issue [Unknown]
  - Device breakage [Unknown]
  - Device issue [Unknown]
  - Device power source issue [Unknown]
  - Product colour issue [Unknown]
  - Osteoporosis [Unknown]
  - Memory impairment [Unknown]

NARRATIVE: CASE EVENT DATE: 20200801
